FAERS Safety Report 21466601 (Version 3)
Quarter: 2022Q4

REPORT INFORMATION
  Report Type: Report from Study
  Country: CN (occurrence: CN)
  Receive Date: 20221017
  Receipt Date: 20221109
  Transmission Date: 20230113
  Serious: Yes (Hospitalization, Other)
  Sender: FDA-Public Use
  Company Number: CN-TAKEDA-2022TUS073175

PATIENT
  Age: 34 Year
  Sex: Male
  Weight: 48 kg

DRUGS (25)
  1. VEDOLIZUMAB [Suspect]
     Active Substance: VEDOLIZUMAB
     Indication: Colitis ulcerative
     Dosage: 300 MILLIGRAM
     Route: 042
     Dates: start: 20220907
  2. GANCICLOVIR [Suspect]
     Active Substance: GANCICLOVIR
     Indication: Gastrointestinal infection
     Dosage: 0.25 GRAM, BID
     Route: 042
     Dates: start: 20221002, end: 20221010
  3. MESALAMINE [Concomitant]
     Active Substance: MESALAMINE
     Indication: Inflammatory bowel disease
     Dosage: UNK
     Dates: start: 202206
  4. PREDNISONE ACETATE [Concomitant]
     Active Substance: PREDNISONE ACETATE
     Indication: Inflammatory bowel disease
     Dosage: UNK
     Dates: start: 202208
  5. FERRIC POLYSACCHARIDE COMPLEX [Concomitant]
     Active Substance: FERRIC POLYSACCHARIDE COMPLEX
     Indication: Iron deficiency anaemia
     Dosage: 300 MILLIGRAM, QD
     Route: 048
     Dates: start: 20220810
  6. FERRIC POLYSACCHARIDE COMPLEX [Concomitant]
     Active Substance: FERRIC POLYSACCHARIDE COMPLEX
     Dosage: 150 MILLIGRAM, BID
     Route: 048
     Dates: start: 20221003
  7. CALCITRIOL [Concomitant]
     Active Substance: CALCITRIOL
     Indication: Mineral supplementation
     Dosage: 0.25 MICROGRAM, QD
     Route: 048
     Dates: start: 20220810
  8. BACILLUS LICHENIFORMIS CAPSULE,LIVE [Concomitant]
     Indication: Dysbiosis
     Dosage: 0.5 GRAM, TID
     Route: 048
     Dates: start: 20220810
  9. POTASSIUM CHLORIDE [Concomitant]
     Active Substance: POTASSIUM CHLORIDE
     Indication: Nutritional supplementation
     Dosage: UNK
     Dates: start: 20221001
  10. POTASSIUM CHLORIDE [Concomitant]
     Active Substance: POTASSIUM CHLORIDE
     Indication: Malnutrition
  11. CALCIUM GLUCONATE [Concomitant]
     Active Substance: CALCIUM GLUCONATE
     Indication: Nutritional supplementation
     Dosage: 1 GRAM, SINGLE
     Route: 042
     Dates: start: 20221001, end: 20221001
  12. DEXTROSE [Concomitant]
     Active Substance: DEXTROSE
     Indication: Nutritional supplementation
     Dosage: 20 GRAM, SINGLE
     Route: 042
     Dates: start: 20221001, end: 20221001
  13. INSULIN NOS [Concomitant]
     Active Substance: INSULIN NOS
     Indication: Nutritional supplementation
     Dosage: UNK UNK, SINGLE
     Route: 042
     Dates: start: 20221001, end: 20221001
  14. SOLU-MEDROL [Concomitant]
     Active Substance: METHYLPREDNISOLONE SODIUM SUCCINATE
     Indication: Inflammatory bowel disease
     Dosage: 20 MILLIGRAM, SINGLE
     Route: 042
     Dates: start: 20221001, end: 20221001
  15. MAGNESIUM ASPARTATE\POTASSIUM ASPARTATE [Concomitant]
     Active Substance: MAGNESIUM ASPARTATE\POTASSIUM ASPARTATE
     Indication: Nutritional supplementation
     Dosage: 1 MILLILITER, SINGLE
     Route: 042
     Dates: start: 20221002, end: 20221002
  16. MAGNESIUM ASPARTATE\POTASSIUM ASPARTATE [Concomitant]
     Active Substance: MAGNESIUM ASPARTATE\POTASSIUM ASPARTATE
     Indication: Malnutrition
     Dosage: 20 MILLILITER, QD
     Route: 042
     Dates: start: 20221002, end: 20221003
  17. MAGNESIUM ASPARTATE\POTASSIUM ASPARTATE [Concomitant]
     Active Substance: MAGNESIUM ASPARTATE\POTASSIUM ASPARTATE
     Dosage: 20 MILLILITER, QD
     Route: 042
     Dates: start: 20221003, end: 20221006
  18. ALBUMIN HUMAN [Concomitant]
     Active Substance: ALBUMIN HUMAN
     Indication: Malnutrition
     Dosage: 20 GRAM, QD
     Route: 042
     Dates: start: 20221002, end: 20221004
  19. VITAMIN C [Concomitant]
     Active Substance: ASCORBIC ACID
     Indication: Malnutrition
     Dosage: 5 MILLILITER, QD
     Route: 042
     Dates: start: 20221002, end: 20221003
  20. SODIUM GLYCEROPHOSPHATE [Concomitant]
     Active Substance: SODIUM GLYCEROPHOSPHATE
     Indication: Malnutrition
     Dosage: 10 MILLILITER, QD
     Route: 042
     Dates: start: 20221002, end: 20221003
  21. SODIUM GLYCEROPHOSPHATE [Concomitant]
     Active Substance: SODIUM GLYCEROPHOSPHATE
     Dosage: 10 MILLILITER, QD
     Route: 042
     Dates: start: 20221003, end: 20221006
  22. IRON SUCROSE [Concomitant]
     Active Substance: IRON SUCROSE
     Indication: Iron deficiency anaemia
     Dosage: 100 MILLIGRAM
     Route: 042
     Dates: start: 20221004, end: 20221011
  23. CALCIUM CARBONATE [Concomitant]
     Active Substance: CALCIUM CARBONATE
     Indication: Nutritional supplementation
     Dosage: 500 MILLIGRAM, TID
     Route: 048
     Dates: start: 20221005
  24. POTASSIUM CITRATE [Concomitant]
     Active Substance: POTASSIUM CITRATE
     Indication: Nutritional supplementation
     Dosage: 40 MILLILITER, SINGLE
     Route: 048
     Dates: start: 20221003, end: 20221003
  25. DEXAMETHASONE [Concomitant]
     Active Substance: DEXAMETHASONE
     Indication: Allergy prophylaxis
     Dosage: 1 MILLILITER, SINGLE
     Route: 042
     Dates: start: 20221004, end: 20221004

REACTIONS (4)
  - Colitis ulcerative [Recovered/Resolved]
  - Gastrointestinal infection [Recovered/Resolved]
  - Rash [Not Recovered/Not Resolved]
  - Pyrexia [Recovered/Resolved]

NARRATIVE: CASE EVENT DATE: 20220921
